FAERS Safety Report 17074540 (Version 1)
Quarter: 2019Q4

REPORT INFORMATION
  Report Type: Spontaneous
  Country: GB (occurrence: GB)
  Receive Date: 20191126
  Receipt Date: 20191126
  Transmission Date: 20200122
  Serious: Yes (Other)
  Sender: FDA-Public Use
  Company Number: GB-TEVA-2019-GB-1141033

PATIENT
  Age: 71 Year
  Sex: Male
  Weight: 83 kg

DRUGS (7)
  1. METFORMIN HYDROCHLORIDE. [Concomitant]
     Active Substance: METFORMIN HYDROCHLORIDE
  2. HUMULIN M3 [Concomitant]
     Active Substance: INSULIN HUMAN
  3. LISINOPRIL DIHYDRATE [Concomitant]
     Active Substance: LISINOPRIL
  4. ATORVASTATIN CALCIUM. [Concomitant]
     Active Substance: ATORVASTATIN CALCIUM
  5. BISOPROLOL FUMARATE. [Concomitant]
     Active Substance: BISOPROLOL FUMARATE
  6. SPIRONOLACTONE. [Suspect]
     Active Substance: SPIRONOLACTONE
     Indication: HYPERTENSION
     Dosage: 4TH LINE AGENT, 25 MG
     Route: 048
     Dates: start: 20181012, end: 20181031
  7. FELODIPINE. [Concomitant]
     Active Substance: FELODIPINE

REACTIONS (1)
  - Diabetes mellitus inadequate control [Recovered/Resolved]

NARRATIVE: CASE EVENT DATE: 20181015
